FAERS Safety Report 6550921-9 (Version None)
Quarter: 2010Q1

REPORT INFORMATION
  Report Type: 
  Country: None (occurrence: None)
  Receive Date: 20100125
  Receipt Date: 20100111
  Transmission Date: 20100710
  Serious: Yes (Other)
  Sender: FDA-Public Use
  Company Number: GB-MYLANLABS-2009S1009209

PATIENT
  Age: 45 Year
  Sex: Male

DRUGS (6)
  1. VALPROIC ACID [Suspect]
     Indication: EPILEPSY
  2. PHENYTOIN [Suspect]
     Indication: EPILEPSY
     Route: 048
     Dates: start: 20090201, end: 20090201
  3. PHENYTOIN [Suspect]
     Route: 048
     Dates: start: 20090201
  4. PHENYTOIN [Suspect]
     Route: 048
     Dates: start: 20060404
  5. LACOSAMIDE [Suspect]
     Indication: EPILEPSY
     Route: 048
     Dates: start: 20080915
  6. LACOSAMIDE [Suspect]
     Route: 048

REACTIONS (4)
  - ANTICONVULSANT DRUG LEVEL [None]
  - ANTICONVULSANT DRUG LEVEL ABNORMAL [None]
  - DIPLOPIA [None]
  - VISION BLURRED [None]
